FAERS Safety Report 23226850 (Version 1)
Quarter: 2023Q4

REPORT INFORMATION
  Report Type: Spontaneous
  Country: US (occurrence: None)
  Receive Date: 20231124
  Receipt Date: 20231124
  Transmission Date: 20240109
  Serious: Yes (Other)
  Sender: FDA-Public Use
  Company Number: 2023A267463

PATIENT
  Sex: Female
  Weight: 124.7 kg

DRUGS (1)
  1. FARXIGA [Suspect]
     Active Substance: DAPAGLIFLOZIN PROPANEDIOL
     Indication: Left ventricular failure
     Route: 048
     Dates: start: 20220726, end: 20220728

REACTIONS (4)
  - COVID-19 [Unknown]
  - Pollakiuria [Unknown]
  - Fatigue [Unknown]
  - Asthenia [Unknown]
